FAERS Safety Report 5221429-8 (Version None)
Quarter: 2007Q1

REPORT INFORMATION
  Report Type: 
  Country: None (occurrence: None)
  Receive Date: 20070126
  Receipt Date: 20070116
  Transmission Date: 20070707
  Serious: Yes (Hospitalization, Other)
  Sender: FDA-Public Use
  Company Number: US-PFIZER INC-2007004760

PATIENT
  Sex: Male

DRUGS (1)
  1. CELEBREX [Suspect]
     Indication: PAIN MANAGEMENT

REACTIONS (2)
  - CEREBROVASCULAR DISORDER [None]
  - MYOCARDIAL INFARCTION [None]
